FAERS Safety Report 9109627 (Version 2)
Quarter: 2013Q1

REPORT INFORMATION
  Report Type: Spontaneous
  Country: IT (occurrence: IT)
  Receive Date: 20130222
  Receipt Date: 20130226
  Transmission Date: 20140127
  Serious: Yes (Hospitalization)
  Sender: FDA-Public Use
  Company Number: IT-BRISTOL-MYERS SQUIBB COMPANY-17390691

PATIENT
  Age: 80 Year
  Sex: Female

DRUGS (3)
  1. COUMADIN TABS 5 MG [Suspect]
     Dosage: LAST DOSE:08-FEB-2013
     Route: 048
     Dates: start: 20130206
  2. KLACID [Interacting]
     Indication: BRONCHOPNEUMONIA
     Dosage: 250 MG GRANULES FOR ORAL SUSPENSION
     Route: 048
     Dates: start: 20130206, end: 20130214
  3. UNASYN [Interacting]
     Indication: BRONCHOPNEUMONIA
     Dosage: 1GR+2GR POWDER FOR SOLUTION FOR INJECTION
     Route: 042
     Dates: start: 20130206, end: 20130214

REACTIONS (2)
  - International normalised ratio increased [Not Recovered/Not Resolved]
  - Drug interaction [Unknown]
